FAERS Safety Report 10461336 (Version 1)
Quarter: 2014Q3

REPORT INFORMATION
  Report Type: Spontaneous
  Country: US (occurrence: None)
  Receive Date: 20140917
  Receipt Date: 20140917
  Transmission Date: 20150326
  Serious: Yes (Other)
  Sender: FDA-Public Use
  Company Number: None

PATIENT
  Age: 60 Year
  Sex: Female
  Weight: 68.04 kg

DRUGS (10)
  1. EFFEXOR XR EXTENDED-RELEASE [Suspect]
     Active Substance: VENLAFAXINE HYDROCHLORIDE
     Indication: FEELING OF RELAXATION
     Route: 048
     Dates: start: 2008
  2. CINNAMON. [Concomitant]
     Active Substance: CINNAMON
  3. COQ10 [Concomitant]
     Active Substance: UBIDECARENONE
  4. EFFEXOR XR EXTENDED-RELEASE [Suspect]
     Active Substance: VENLAFAXINE HYDROCHLORIDE
     Indication: HOT FLUSH
     Route: 048
     Dates: start: 2008
  5. EFFEXOR XR EXTENDED-RELEASE [Suspect]
     Active Substance: VENLAFAXINE HYDROCHLORIDE
     Indication: ANGER
     Route: 048
     Dates: start: 2008
  6. VESICARE [Concomitant]
     Active Substance: SOLIFENACIN SUCCINATE
  7. TRAZODONE [Concomitant]
     Active Substance: TRAZODONE HYDROCHLORIDE
  8. RED YEAST RICE [Concomitant]
     Active Substance: DIETARY SUPPLEMENT
  9. EFFEXOR XR EXTENDED-RELEASE [Suspect]
     Active Substance: VENLAFAXINE HYDROCHLORIDE
     Indication: VULVAL OEDEMA
     Route: 048
     Dates: start: 2008
  10. VITAMIN D [Concomitant]
     Active Substance: CHOLECALCIFEROL

REACTIONS (3)
  - Constipation [None]
  - Hot flush [None]
  - Vulval oedema [None]

NARRATIVE: CASE EVENT DATE: 201402
